FAERS Safety Report 13120726 (Version 1)
Quarter: 2017Q1

REPORT INFORMATION
  Report Type: Spontaneous
  Country: FR (occurrence: FR)
  Receive Date: 20170117
  Receipt Date: 20170117
  Transmission Date: 20170428
  Serious: Yes (Other)
  Sender: FDA-Public Use
  Company Number: PHHY2017FR002400

PATIENT
  Age: 34 Year
  Sex: Female

DRUGS (1)
  1. COSENTYX [Suspect]
     Active Substance: SECUKINUMAB
     Indication: GUTTATE PSORIASIS
     Dosage: 300 MG, QW (1 DF, WEEKLY)
     Route: 065
     Dates: start: 20161205, end: 20161212

REACTIONS (8)
  - Feeding disorder [Unknown]
  - Oropharyngeal pain [Unknown]
  - Aphthous ulcer [Recovered/Resolved]
  - Oral pain [Unknown]
  - Tongue discolouration [Unknown]
  - Product use issue [Unknown]
  - Oral mucosal erythema [Unknown]
  - Glossodynia [Unknown]

NARRATIVE: CASE EVENT DATE: 20161214
